FAERS Safety Report 7948038 (Version 2)
Quarter: 2014Q1

REPORT INFORMATION
  Report Type: Spontaneous
  Country: US (occurrence: None)
  Receive Date: 20110426
  Receipt Date: 20140331
  Transmission Date: 20141002
  Serious: Yes (Death, Other)
  Sender: FDA-Public Use
  Company Number: AUR-APL-2011-01276

PATIENT
  Age: 40 Year
  Sex: Female

DRUGS (5)
  1. SERTRALINE [Suspect]
     Indication: PRODUCT USED FOR UNKNOWN INDICATION
  2. RISPERIDONE [Suspect]
     Indication: PRODUCT USED FOR UNKNOWN INDICATION
  3. HYDROCHLOROTHIAZIDE (HYDROCHLOROTHIAZIDE) [Suspect]
     Indication: PRODUCT USED FOR UNKNOWN INDICATION
  4. GLUCOVANCE [Suspect]
  5. GLUCOVANCE [Suspect]
     Indication: PRODUCT USED FOR UNKNOWN INDICATION

REACTIONS (9)
  - Toxicity to various agents [None]
  - Blood lactic acid increased [None]
  - Lethargy [None]
  - Vomiting [None]
  - Hypoglycaemia [None]
  - Metabolic acidosis [None]
  - Haemodialysis [None]
  - Hypotension [None]
  - Overdose [None]
